FAERS Safety Report 21271666 (Version 2)
Quarter: 2022Q3

REPORT INFORMATION
  Report Type: Spontaneous
  Country: JP (occurrence: JP)
  Receive Date: 20220830
  Receipt Date: 20220906
  Transmission Date: 20221027
  Serious: Yes (Life-Threatening, Hospitalization)
  Sender: FDA-Public Use
  Company Number: JP-TEVA-2022-JP-2068609

PATIENT
  Age: 43 Year
  Sex: Male
  Weight: 62.7 kg

DRUGS (5)
  1. MIDAZOLAM [Suspect]
     Active Substance: MIDAZOLAM
     Indication: Febrile convulsion
     Dosage: CONTINUOUS IV INFUSION
     Route: 041
  2. DIAZEPAM [Suspect]
     Active Substance: DIAZEPAM
     Indication: Febrile convulsion
     Dosage: ADMINISTERED TWICE ON DAY 1
     Route: 065
  3. PHENYTOIN [Suspect]
     Active Substance: PHENYTOIN
     Indication: Febrile convulsion
     Dosage: ON DAY 1
     Route: 042
  4. PHENOBARBITAL [Suspect]
     Active Substance: PHENOBARBITAL
     Indication: Febrile convulsion
     Dosage: ON DAY 1
     Route: 065
  5. PROPOFOL [Suspect]
     Active Substance: PROPOFOL
     Indication: Febrile convulsion
     Dosage: ON DAY 1
     Route: 065

REACTIONS (1)
  - Treatment failure [Unknown]
